FAERS Safety Report 8267928-6 (Version None)
Quarter: 2012Q2

REPORT INFORMATION
  Report Type: 
  Country: None (occurrence: None)
  Receive Date: 20120409
  Receipt Date: 20120404
  Transmission Date: 20120825
  Serious: Yes (Hospitalization)
  Sender: FDA-Public Use
  Company Number: PHHO2009FR14647

PATIENT
  Sex: Female
  Weight: 75.1 kg

DRUGS (3)
  1. TAXOL [Suspect]
  2. HERCEPTIN [Concomitant]
  3. EVEROLIMUS [Suspect]
     Indication: BREAST CANCER
     Dosage: 10 MG
     Route: 048
     Dates: start: 20090811

REACTIONS (2)
  - GENERAL PHYSICAL CONDITION ABNORMAL [None]
  - VOMITING [None]
